FAERS Safety Report 17800859 (Version 2)
Quarter: 2020Q3

REPORT INFORMATION
  Report Type: Spontaneous
  Country: US (occurrence: US)
  Receive Date: 20200519
  Receipt Date: 20200714
  Transmission Date: 20201102
  Serious: No
  Sender: FDA-Public Use
  Company Number: US-LUNDBECK-DKLU3016463

PATIENT
  Age: 42 Year
  Sex: Female

DRUGS (2)
  1. NORTHERA [Suspect]
     Active Substance: DROXIDOPA
     Indication: PRODUCT USED FOR UNKNOWN INDICATION
     Route: 048
  2. NORTHERA [Suspect]
     Active Substance: DROXIDOPA
     Dosage: OVERDOSE: 2000MG DAILY?1 200MG CAP QID AND 1 300MG CAP QID TO MAKE 500MG QID
     Route: 048

REACTIONS (4)
  - Drug ineffective [Unknown]
  - Loss of personal independence in daily activities [Unknown]
  - Overdose [Unknown]
  - Hypotension [Unknown]
